FAERS Safety Report 8054104-5 (Version None)
Quarter: 2012Q1

REPORT INFORMATION
  Report Type: 
  Country: None (occurrence: None)
  Receive Date: 20120118
  Receipt Date: 20120113
  Transmission Date: 20120608
  Serious: Yes (Hospitalization)
  Sender: FDA-Public Use
  Company Number: US-B.I. PHARMACEUTICALS,INC./RIDGEFIELD-2011-BP-27130PF

PATIENT
  Age: 70 Year
  Sex: Female

DRUGS (5)
  1. OXYGEN [Concomitant]
  2. SPIRIVA [Suspect]
     Indication: CHRONIC OBSTRUCTIVE PULMONARY DISEASE
  3. ADVAIR DISKUS 100/50 [Concomitant]
  4. SPIRIVA [Suspect]
     Indication: EMPHYSEMA
  5. ALBUTEROL [Concomitant]

REACTIONS (1)
  - GALLBLADDER OPERATION [None]
